FAERS Safety Report 8680007 (Version 2)
Quarter: 2013Q1

REPORT INFORMATION
  Report Type: Spontaneous
  Country: US (occurrence: None)
  Receive Date: 20120706
  Receipt Date: 20130219
  Transmission Date: 20140127
  Serious: Yes (Hospitalization)
  Sender: FDA-Public Use
  Company Number: DSU-2012-05224

PATIENT
  Age: 74 Year
  Sex: Male

DRUGS (6)
  1. OLMESARTAN MEDOXOMIL [Suspect]
     Route: 048
     Dates: start: 2008, end: 20110207
  2. AMBIEN (ZOLPIDEM TARTRATE) (ZOLPIDEM TARTRATE) [Concomitant]
  3. AVODART (DUTASTERIDE) (1 DOSAGE FORMS) (DUTASTERIDE) [Concomitant]
  4. ENTOCORT (BUDESONIDE) (BUDESONIDE) [Concomitant]
  5. APPLE PECTIN (MALUS DOMESTICA) (MALUS DOMESTICA) [Concomitant]
  6. PROBIOTIC (LACTOBACILLUS REUTERI) (LACTOBACILLUS REUTERI) [Concomitant]

REACTIONS (3)
  - MALABSORPTION [None]
  - WEIGHT DECREASED [None]
  - GASTRITIS [None]
